FAERS Safety Report 19317575 (Version 2)
Quarter: 2021Q2

REPORT INFORMATION
  Report Type: Report from Study
  Country: FR (occurrence: FR)
  Receive Date: 20210527
  Receipt Date: 20210608
  Transmission Date: 20210717
  Serious: Yes (Other)
  Sender: FDA-Public Use
  Company Number: FR-B.I. PHARMACEUTICALS,INC./RIDGEFIELD-2021-BI-105305

PATIENT
  Age: 58 Year
  Sex: Female

DRUGS (2)
  1. DOTAREM [Concomitant]
     Active Substance: GADOTERATE MEGLUMINE
     Indication: PRODUCT USED FOR UNKNOWN INDICATION
  2. PERSANTIN AMPOULE [Suspect]
     Active Substance: DIPYRIDAMOLE
     Indication: VASODILATATION

REACTIONS (1)
  - Ischaemia [Unknown]
